FAERS Safety Report 8486924-7 (Version None)
Quarter: 2012Q3

REPORT INFORMATION
  Report Type: 
  Country: None (occurrence: None)
  Receive Date: 20120704
  Receipt Date: 20120625
  Transmission Date: 20120928
  Serious: Yes (Other)
  Sender: FDA-Public Use
  Company Number: US-BRISTOL-MYERS SQUIBB COMPANY-16709941

PATIENT
  Age: 60 Year
  Sex: Female
  Weight: 62 kg

DRUGS (5)
  1. MEDROL [Concomitant]
     Route: 048
  2. COMBIPATCH [Concomitant]
  3. PAXIL [Concomitant]
  4. ABATACEPT SUBQ INJECTION 125MG/ML [Suspect]
     Indication: RHEUMATOID ARTHRITIS
     Dosage: NDC 0003-21883
     Route: 058
     Dates: start: 20120413
  5. PROTONIX [Concomitant]
     Route: 048

REACTIONS (5)
  - WEIGHT INCREASED [None]
  - HEPATIC ENZYME INCREASED [None]
  - ALOPECIA [None]
  - HEADACHE [None]
  - URINARY TRACT INFECTION [None]
